FAERS Safety Report 24188215 (Version 1)
Quarter: 2024Q3

REPORT INFORMATION
  Report Type: Spontaneous
  Country: US (occurrence: US)
  Receive Date: 20240808
  Receipt Date: 20240808
  Transmission Date: 20241017
  Serious: No
  Sender: OTSUKA
  Company Number: US-OTSUKA-2024_005948

PATIENT
  Sex: Female
  Weight: 83.91 kg

DRUGS (3)
  1. ABILIFY MAINTENA [Suspect]
     Active Substance: ARIPIPRAZOLE
     Indication: Depression
     Dosage: 400 MG, QM (SHOT IN THE LEFT HIP)
     Route: 030
  2. ABILIFY MAINTENA [Suspect]
     Active Substance: ARIPIPRAZOLE
     Indication: Anxiety
  3. SEROQUEL [Concomitant]
     Active Substance: QUETIAPINE FUMARATE
     Indication: Product used for unknown indication
     Dosage: 700 MG
     Route: 065

REACTIONS (2)
  - Drug effective for unapproved indication [Unknown]
  - Product dose omission issue [Unknown]
